FAERS Safety Report 5403923-X (Version None)
Quarter: 2007Q3

REPORT INFORMATION
  Report Type: 
  Country: None (occurrence: None)
  Receive Date: 20070706
  Receipt Date: 20070130
  Transmission Date: 20080115
  Serious: Yes (Hospitalization)
  Sender: FDA-Public Use
  Company Number: 480633

PATIENT
  Age: 56 Year
  Sex: Male
  Weight: 72.6 kg

DRUGS (1)
  1. CELLCEPT [Suspect]
     Indication: DRUG USE FOR UNKNOWN INDICATION
     Dosage: 400 MG DAILY ORAL
     Route: 048
     Dates: start: 20040615, end: 20060115

REACTIONS (1)
  - COLLAPSE OF LUNG [None]
